FAERS Safety Report 5672794-9 (Version None)
Quarter: 2008Q1

REPORT INFORMATION
  Report Type: 
  Country: None (occurrence: None)
  Receive Date: 20080319
  Receipt Date: 20070409
  Transmission Date: 20080703
  Serious: No
  Sender: FDA-Public Use
  Company Number: US-KINGPHARMUSA00001-K200700432

PATIENT

DRUGS (3)
  1. ALTACE [Suspect]
     Indication: HYPERTENSION
     Dosage: 10 MG, QD
     Route: 048
     Dates: start: 20070407
  2. ZYLOPRIM [Concomitant]
     Indication: GOUT
     Dosage: 300 MG, QD
     Route: 048
     Dates: start: 19820101
  3. VITAMIN E                          /00110501/ [Concomitant]
     Indication: GOUT
     Dosage: UNK, QD
     Route: 048
     Dates: start: 19820101

REACTIONS (3)
  - DYSGEUSIA [None]
  - GOUT [None]
  - PAIN IN EXTREMITY [None]
